FAERS Safety Report 6500992-0 (Version None)
Quarter: 2009Q4

REPORT INFORMATION
  Report Type: 
  Country: None (occurrence: None)
  Receive Date: 20091216
  Receipt Date: 20090519
  Transmission Date: 20100525
  Serious: No
  Sender: FDA-Public Use
  Company Number: A0784983A

PATIENT
  Age: 73 Year
  Sex: Female

DRUGS (3)
  1. COMMIT [Suspect]
     Dates: start: 20090218, end: 20090517
  2. BLOOD PRESSURE MEDICATION [Concomitant]
     Indication: BLOOD PRESSURE
  3. THYROID MEDICATION [Concomitant]
     Indication: THYROID DISORDER

REACTIONS (2)
  - DRUG ADMINISTRATION ERROR [None]
  - NICOTINE DEPENDENCE [None]
